FAERS Safety Report 4561184-8 (Version None)
Quarter: 2005Q1

REPORT INFORMATION
  Report Type: 
  Country: None (occurrence: None)
  Receive Date: 20050126
  Receipt Date: 20050111
  Transmission Date: 20050727
  Serious: Yes (Hospitalization, Other)
  Sender: FDA-Public Use
  Company Number: DE-AMGEN-UK107159

PATIENT
  Sex: Male
  Weight: 94 kg

DRUGS (11)
  1. NEUPOGEN [Suspect]
     Indication: CHEMOTHERAPY
     Route: 058
     Dates: start: 20050108, end: 20050108
  2. THALIDOMIDE [Suspect]
     Route: 048
     Dates: start: 20040801
  3. NEORECORMON [Concomitant]
     Route: 058
     Dates: end: 20050102
  4. CYCLOPHOSPHAMIDE [Concomitant]
     Route: 042
     Dates: start: 20041204, end: 20050107
  5. ETOPOSIDE [Concomitant]
     Route: 042
     Dates: start: 20041204, end: 20050107
  6. DEXAMETHASONE [Concomitant]
     Route: 048
     Dates: start: 20041204, end: 20050107
  7. PANTOZOL [Concomitant]
     Route: 048
  8. VOLTAREN [Concomitant]
     Route: 048
  9. APONAL [Concomitant]
     Route: 048
  10. DURAGESIC [Concomitant]
     Route: 048
  11. VIGABATRIN [Concomitant]
     Route: 048

REACTIONS (4)
  - BRADYCARDIA [None]
  - CONDUCTION DISORDER [None]
  - DRUG INTERACTION [None]
  - SINUS BRADYCARDIA [None]
